FAERS Safety Report 21937303 (Version 1)
Quarter: 2023Q1

REPORT INFORMATION
  Report Type: Spontaneous
  Country: DE (occurrence: DE)
  Receive Date: 20230201
  Receipt Date: 20230201
  Transmission Date: 20230418
  Serious: Yes (Congenital Anomaly)
  Sender: FDA-Public Use
  Company Number: DE-EMBRYOTOX-202209851

PATIENT
  Age: 0 Year
  Sex: Male

DRUGS (4)
  1. VENLAFAXINE HYDROCHLORIDE [Suspect]
     Active Substance: VENLAFAXINE HYDROCHLORIDE
     Indication: Depression
     Dosage: 150 MILLIGRAM DAILY;  0. - 19.5. GESTATIONAL WEEK, PROLONGED-RELEASE VENLAFAXINE
     Route: 065
     Dates: start: 20220418, end: 20220903
  2. IMPFSTOFF FSME [Concomitant]
     Indication: Immunisation
     Dosage: 9. - 10. GESTATIONAL WEEK
     Route: 065
  3. LEVOTHYROXINE SODIUM [Concomitant]
     Active Substance: LEVOTHYROXINE SODIUM
     Indication: Hypothyroidism
     Dosage: 100 MICROGRAM DAILY; 0. - 19.5. GESTATIONAL WEEK
     Route: 065
     Dates: start: 20220418, end: 20220903
  4. IBUPROFEN [Concomitant]
     Active Substance: IBUPROFEN
     Indication: COVID-19
     Dosage: 1200 MILLIGRAM DAILY; 1200 [MG/D ]/ 2X600MG DAILY FOR 3 DAYS, 6.2. - 7.4. GESTATIONAL WEEK
     Route: 065

REACTIONS (2)
  - Spina bifida [Not Recovered/Not Resolved]
  - Foetal exposure during pregnancy [Unknown]

NARRATIVE: CASE EVENT DATE: 20220418
